FAERS Safety Report 21435875 (Version 4)
Quarter: 2022Q4

REPORT INFORMATION
  Report Type: Report from Study
  Country: US (occurrence: US)
  Receive Date: 20221010
  Receipt Date: 20221128
  Transmission Date: 20230112
  Serious: Yes (Other)
  Sender: FDA-Public Use
  Company Number: US-NOVARTISTESTPH-NVSC2022US228483

PATIENT
  Sex: Female

DRUGS (1)
  1. KISQALI [Suspect]
     Active Substance: RIBOCICLIB
     Indication: Product used for unknown indication
     Dosage: UNK
     Route: 048

REACTIONS (7)
  - Nasopharyngitis [Unknown]
  - Ascites [Unknown]
  - Device related infection [Unknown]
  - Tremor [Unknown]
  - Urinary tract infection [Unknown]
  - Nausea [Unknown]
  - Asthenia [Unknown]
